FAERS Safety Report 17437332 (Version 2)
Quarter: 2020Q1

REPORT INFORMATION
  Report Type: Spontaneous
  Country: FR (occurrence: FR)
  Receive Date: 20200219
  Receipt Date: 20200225
  Transmission Date: 20200409
  Serious: Yes (Life-Threatening)
  Sender: FDA-Public Use
  Company Number: FR-JNJFOC-20200219356

PATIENT
  Age: 48 Year
  Sex: Female
  Weight: 42 kg

DRUGS (5)
  1. LAMALINE                           /00764901/ [Suspect]
     Active Substance: ACETAMINOPHEN\BELLADONNA LEAF\CAFFEINE\OPIUM
     Indication: PAIN
     Route: 048
     Dates: start: 201912, end: 202001
  2. DULOXETINE. [Concomitant]
     Active Substance: DULOXETINE
  3. VALIUM [Suspect]
     Active Substance: DIAZEPAM
     Indication: POISONING DELIBERATE
     Route: 048
     Dates: start: 20200128, end: 20200128
  4. DUROGESIC [Suspect]
     Active Substance: FENTANYL
     Indication: PAIN
     Route: 062
  5. OXYNORM [Suspect]
     Active Substance: OXYCODONE HYDROCHLORIDE
     Indication: POISONING DELIBERATE
     Route: 048
     Dates: start: 20200128, end: 20200128

REACTIONS (3)
  - Pneumonia aspiration [Recovering/Resolving]
  - Poisoning deliberate [Recovered/Resolved]
  - Depressed level of consciousness [Recovered/Resolved]

NARRATIVE: CASE EVENT DATE: 20200128
